FAERS Safety Report 5549811-X (Version None)
Quarter: 2007Q4

REPORT INFORMATION
  Report Type: 
  Country: None (occurrence: None)
  Receive Date: 20071207
  Receipt Date: 20071207
  Transmission Date: 20080405
  Serious: Yes (Hospitalization)
  Sender: FDA-Public Use
  Company Number: None

PATIENT
  Age: 69 Year
  Sex: Female
  Weight: 71.9 kg

DRUGS (1)
  1. BACTRIM [Suspect]

REACTIONS (5)
  - BACTERIA STOOL IDENTIFIED [None]
  - ELECTROLYTE IMBALANCE [None]
  - HYPOVOLAEMIA [None]
  - NAUSEA [None]
  - VOMITING [None]
